FAERS Safety Report 9391720 (Version 1)
Quarter: 2013Q3

REPORT INFORMATION
  Report Type: Spontaneous
  Country: US (occurrence: US)
  Receive Date: 20130709
  Receipt Date: 20130709
  Transmission Date: 20140515
  Serious: Yes (Hospitalization)
  Sender: FDA-Public Use
  Company Number: PHHY2013US070737

PATIENT
  Age: 42 Year
  Sex: Male

DRUGS (3)
  1. HYDROCHLOROTHIAZIDE [Suspect]
     Indication: HYPERTENSION
     Dosage: UNK
  2. LOSARTAN [Suspect]
     Indication: HYPERTENSION
     Dosage: UNK UKN, UNK
  3. CALCIUM CARBONATE [Concomitant]
     Indication: GASTROOESOPHAGEAL REFLUX DISEASE
     Dosage: 6-8 GRAMS, 4-5 DAYS A WEEK

REACTIONS (13)
  - Milk-alkali syndrome [Unknown]
  - Hypercalcaemia [Recovering/Resolving]
  - Abdominal pain [Unknown]
  - Abdominal tenderness [Unknown]
  - Nausea [Unknown]
  - Vomiting [Unknown]
  - Hypophagia [Unknown]
  - Blood creatinine increased [Recovering/Resolving]
  - Blood phosphorus decreased [Unknown]
  - Blood bicarbonate increased [Recovering/Resolving]
  - Blood parathyroid hormone decreased [Unknown]
  - Tachycardia [Unknown]
  - Electrophoresis protein abnormal [Unknown]
